FAERS Safety Report 7675943-6 (Version None)
Quarter: 2011Q3

REPORT INFORMATION
  Report Type: 
  Country: None (occurrence: None)
  Receive Date: 20110811
  Receipt Date: 20091103
  Transmission Date: 20111222
  Serious: No
  Sender: FDA-Public Use
  Company Number: 2009BI035815

PATIENT
  Sex: Female

DRUGS (1)
  1. TYSABRI [Suspect]
     Indication: MULTIPLE SCLEROSIS
     Route: 042
     Dates: start: 20071203

REACTIONS (4)
  - URINARY TRACT INFECTION [None]
  - DRUG INEFFECTIVE [None]
  - BACK PAIN [None]
  - FALL [None]
